FAERS Safety Report 9374030 (Version 1)
Quarter: 2013Q2

REPORT INFORMATION
  Report Type: Spontaneous
  Country: NL (occurrence: NL)
  Receive Date: 20130628
  Receipt Date: 20130628
  Transmission Date: 20140414
  Serious: Yes (Other)
  Sender: FDA-Public Use
  Company Number: NL-ACCORD-018306

PATIENT
  Age: 36 Year
  Sex: Male

DRUGS (5)
  1. QUETIAPINE FUMARATE [Suspect]
     Indication: PRODUCT USED FOR UNKNOWN INDICATION
  2. TEMAZEPAM [Concomitant]
  3. VENLAFAXINE [Concomitant]
  4. LORAZEPAM [Concomitant]
  5. PROMETHAZINE [Concomitant]

REACTIONS (2)
  - Blood cortisol decreased [Recovering/Resolving]
  - Secondary hypothyroidism [Recovered/Resolved]
